FAERS Safety Report 21529956 (Version 1)
Quarter: 2022Q4

REPORT INFORMATION
  Report Type: Report from Study
  Country: US (occurrence: US)
  Receive Date: 20221031
  Receipt Date: 20221031
  Transmission Date: 20230112
  Serious: Yes (Other)
  Sender: FDA-Public Use
  Company Number: US-ABBVIE-4180197

PATIENT
  Sex: Male

DRUGS (2)
  1. HUMIRA [Suspect]
     Active Substance: ADALIMUMAB
     Indication: Crohn^s disease
     Route: 058
     Dates: start: 2022
  2. Johnson + Johnson [Concomitant]
     Indication: COVID-19 immunisation
     Dosage: 1 IN ONCE
     Route: 030

REACTIONS (8)
  - Meniere^s disease [Not Recovered/Not Resolved]
  - Gastrooesophageal reflux disease [Unknown]
  - Small intestine ulcer [Recovering/Resolving]
  - Flatulence [Not Recovered/Not Resolved]
  - Hypertension [Unknown]
  - Presyncope [Unknown]
  - Chest discomfort [Unknown]
  - Food intolerance [Unknown]

NARRATIVE: CASE EVENT DATE: 20220101
